FAERS Safety Report 4649439-X (Version None)
Quarter: 2005Q2

REPORT INFORMATION
  Report Type: 
  Country: None (occurrence: None)
  Receive Date: 20050428
  Receipt Date: 20050428
  Transmission Date: 20051028
  Serious: Yes (Hospitalization)
  Sender: FDA-Public Use
  Company Number: None

PATIENT
  Age: 59 Year
  Sex: Male
  Weight: 102.9665 kg

DRUGS (1)
  1. SILDENAFIL CITRATE [Suspect]
     Indication: CARDIAC FAILURE CONGESTIVE
     Dosage: 75 MG PO TID
     Route: 048
     Dates: start: 20040510

REACTIONS (2)
  - POSTOPERATIVE FEVER [None]
  - VIRAL INFECTION [None]
